FAERS Safety Report 16283271 (Version 1)
Quarter: 2019Q2

REPORT INFORMATION
  Report Type: Spontaneous
  Country: FR (occurrence: FR)
  Receive Date: 20190507
  Receipt Date: 20190507
  Transmission Date: 20190711
  Serious: Yes (Hospitalization, Other)
  Sender: FDA-Public Use
  Company Number: FR-MYLANLABS-12P-056-0961540-00

PATIENT
  Age: 60 Year
  Sex: Male

DRUGS (2)
  1. ISOPTINE [Suspect]
     Active Substance: VERAPAMIL HYDROCHLORIDE
     Indication: HYPERTENSION
     Dosage: 120 MILLIGRAM, QD
     Route: 048
     Dates: start: 20120613, end: 20120629
  2. KERLONE [Suspect]
     Active Substance: BETAXOLOL HYDROCHLORIDE
     Indication: HYPERTENSION
     Dosage: 20 MG,QD
     Route: 048
     Dates: start: 20120613, end: 20120629

REACTIONS (5)
  - Acute kidney injury [Recovering/Resolving]
  - Hypotension [Recovered/Resolved]
  - Shock [Recovered/Resolved]
  - Cardiovascular disorder [Recovered/Resolved]
  - Cardiogenic shock [Unknown]

NARRATIVE: CASE EVENT DATE: 20120613
